FAERS Safety Report 18549495 (Version 2)
Quarter: 2020Q4

REPORT INFORMATION
  Report Type: Spontaneous
  Country: US (occurrence: US)
  Receive Date: 20201126
  Receipt Date: 20201229
  Transmission Date: 20210114
  Serious: No
  Sender: FDA-Public Use
  Company Number: US-ASTRAZENECA-2020SF46264

PATIENT
  Sex: Female

DRUGS (3)
  1. PREDNISONE. [Concomitant]
     Active Substance: PREDNISONE
  2. SYMBICORT [Suspect]
     Active Substance: BUDESONIDE\FORMOTEROL FUMARATE DIHYDRATE
     Indication: ILLNESS
     Dosage: 80/4.5 MCG, 1 PUFF
     Route: 055
  3. SYMBICORT [Suspect]
     Active Substance: BUDESONIDE\FORMOTEROL FUMARATE DIHYDRATE
     Indication: COUGH
     Dosage: 80/4.5 MCG, 1 PUFF
     Route: 055

REACTIONS (9)
  - Dysgeusia [Unknown]
  - Wrong technique in product usage process [Unknown]
  - Pulmonary congestion [Unknown]
  - Bacterial infection [Unknown]
  - Extra dose administered [Unknown]
  - Chronic obstructive pulmonary disease [Unknown]
  - Device issue [Unknown]
  - Retching [Unknown]
  - Intentional device misuse [Unknown]
